FAERS Safety Report 23961738 (Version 2)
Quarter: 2024Q3

REPORT INFORMATION
  Report Type: Spontaneous
  Country: US (occurrence: US)
  Receive Date: 20240611
  Receipt Date: 20240808
  Transmission Date: 20241017
  Serious: Yes (Hospitalization, Other)
  Sender: OTSUKA
  Company Number: US-OTSUKA-2024_015833

PATIENT
  Sex: Male
  Weight: 86.18 kg

DRUGS (2)
  1. ABILIFY MAINTENA [Suspect]
     Active Substance: ARIPIPRAZOLE
     Indication: Schizophrenia
     Dosage: 300 MG
     Route: 065
  2. ABILIFY MAINTENA [Suspect]
     Active Substance: ARIPIPRAZOLE
     Dosage: 400 MG
     Route: 065

REACTIONS (8)
  - COVID-19 [Recovered/Resolved]
  - Mental impairment [Unknown]
  - Psychotic disorder [Recovered/Resolved]
  - Amnesia [Unknown]
  - Glucose tolerance impaired [Unknown]
  - Weight fluctuation [Unknown]
  - Somnolence [Unknown]
  - Drug ineffective [Unknown]
